FAERS Safety Report 19456724 (Version 2)
Quarter: 2021Q4

REPORT INFORMATION
  Report Type: Spontaneous
  Country: CN (occurrence: CN)
  Receive Date: 20210624
  Receipt Date: 20211021
  Transmission Date: 20220304
  Serious: Yes (Hospitalization, Other)
  Sender: FDA-Public Use
  Company Number: CN-ROCHE-2853281

PATIENT
  Age: 65 Year
  Sex: Female

DRUGS (11)
  1. MABTHERA [Suspect]
     Active Substance: RITUXIMAB
     Indication: Extranodal marginal zone B-cell lymphoma (MALT type)
     Route: 065
     Dates: start: 201907, end: 201912
  2. MABTHERA [Suspect]
     Active Substance: RITUXIMAB
     Route: 065
     Dates: start: 20201114, end: 20210326
  3. CYCLOPHOSPHAMIDE [Concomitant]
     Active Substance: CYCLOPHOSPHAMIDE
     Indication: Extranodal marginal zone B-cell lymphoma (MALT type)
     Dates: start: 201907, end: 201912
  4. DOXORUBICIN [Concomitant]
     Active Substance: DOXORUBICIN
     Indication: Extranodal marginal zone B-cell lymphoma (MALT type)
     Dates: start: 201907, end: 201912
  5. VINCRISTINE [Concomitant]
     Active Substance: VINCRISTINE
     Indication: Extranodal marginal zone B-cell lymphoma (MALT type)
     Dates: start: 201907, end: 201912
  6. PREDNISONE [Concomitant]
     Active Substance: PREDNISONE
     Indication: Extranodal marginal zone B-cell lymphoma (MALT type)
     Dates: start: 201907, end: 201912
  7. THALIDOMIDE [Concomitant]
     Active Substance: THALIDOMIDE
     Indication: Extranodal marginal zone B-cell lymphoma (MALT type)
     Dates: start: 2020
  8. LENALIDOMIDE [Concomitant]
     Active Substance: LENALIDOMIDE
     Indication: Extranodal marginal zone B-cell lymphoma (MALT type)
     Dates: start: 2020
  9. BENDAMUSTINE [Concomitant]
     Active Substance: BENDAMUSTINE
     Indication: Extranodal marginal zone B-cell lymphoma (MALT type)
     Dates: start: 20201114, end: 20210326
  10. MITOXANTRONE [Concomitant]
     Active Substance: MITOXANTRONE HYDROCHLORIDE
  11. ZANUBRUTINIB [Concomitant]
     Active Substance: ZANUBRUTINIB
     Indication: Extranodal marginal zone B-cell lymphoma (MALT type)
     Dosage: MAINTENANCE THERAPY STARTED IN 2021
     Route: 048
     Dates: start: 20210823

REACTIONS (7)
  - Agranulocytosis [Unknown]
  - Pneumonia [Recovering/Resolving]
  - Rash [Unknown]
  - Constipation [Unknown]
  - Hepatic function abnormal [Unknown]
  - Herpes zoster [Recovering/Resolving]
  - Off label use [Unknown]
